FAERS Safety Report 17237829 (Version 1)
Quarter: 2020Q1

REPORT INFORMATION
  Report Type: Spontaneous
  Country: US (occurrence: US)
  Receive Date: 20200106
  Receipt Date: 20200106
  Transmission Date: 20200409
  Serious: Yes (Other)
  Sender: FDA-Public Use
  Company Number: US-BAYER-2019-237587

PATIENT
  Age: 54 Year
  Sex: Female

DRUGS (2)
  1. WARFARIN [Suspect]
     Active Substance: WARFARIN
  2. ACETYLSALICYLIC ACID [Suspect]
     Active Substance: ASPIRIN
     Dosage: UNK

REACTIONS (5)
  - Labelled drug-drug interaction medication error [None]
  - Subarachnoid haemorrhage [None]
  - Cerebral vasoconstriction [None]
  - Subdural haematoma [None]
  - Cerebral haemorrhage [None]
